FAERS Safety Report 19620923 (Version 1)
Quarter: 2021Q3

REPORT INFORMATION
  Report Type: Spontaneous
  Country: US (occurrence: US)
  Receive Date: 20210728
  Receipt Date: 20210728
  Transmission Date: 20211014
  Serious: No
  Sender: FDA-Public Use
  Company Number: None

PATIENT
  Age: 57 Year
  Sex: Female
  Weight: 90 kg

DRUGS (1)
  1. HYDROCHLOROTHIAZIDE /LISINOPRIL (HYDROLORTHIAZIDE 12.5MG/LISINOPRIL 20 [Suspect]
     Active Substance: HYDROCHLOROTHIAZIDE\LISINOPRIL
     Indication: HYPERTENSION
     Dosage: ?          OTHER FREQUENCY:AM;?
     Route: 048
     Dates: start: 20190806, end: 20210726

REACTIONS (1)
  - Angioedema [None]

NARRATIVE: CASE EVENT DATE: 20210726
